FAERS Safety Report 6121501-4 (Version None)
Quarter: 2009Q1

REPORT INFORMATION
  Report Type: 
  Country: None (occurrence: None)
  Receive Date: 20090316
  Receipt Date: 20090316
  Transmission Date: 20090719
  Serious: Yes (Life-Threatening, Hospitalization, Disabling, Other)
  Sender: FDA-Public Use
  Company Number: None

PATIENT
  Age: 60 Year
  Sex: Female
  Weight: 73.9363 kg

DRUGS (1)
  1. MIRENA [Suspect]
     Dates: start: 20080813, end: 20090305

REACTIONS (1)
  - DEEP VEIN THROMBOSIS [None]
